FAERS Safety Report 6791471-4 (Version None)
Quarter: 2010Q2

REPORT INFORMATION
  Report Type: 
  Country: None (occurrence: None)
  Receive Date: 20100624
  Receipt Date: 20080818
  Transmission Date: 20101027
  Serious: No
  Sender: FDA-Public Use
  Company Number: US-PFIZER INC-2008056884

PATIENT
  Age: 81 Year
  Sex: Male

DRUGS (3)
  1. XALATAN [Suspect]
     Indication: GLAUCOMA
  2. COSOPT [Suspect]
     Indication: GLAUCOMA
  3. BRIMONIDINE TARTRATE [Suspect]
     Indication: GLAUCOMA

REACTIONS (4)
  - DRUG HYPERSENSITIVITY [None]
  - ERYTHEMA [None]
  - EYE DISCHARGE [None]
  - OCULAR HYPERAEMIA [None]
